FAERS Safety Report 8111757-0 (Version None)
Quarter: 2012Q1

REPORT INFORMATION
  Report Type: 
  Country: None (occurrence: None)
  Receive Date: 20120203
  Receipt Date: 20120123
  Transmission Date: 20120608
  Serious: Yes (Other)
  Sender: FDA-Public Use
  Company Number: US-JNJFOC-20111208808

PATIENT
  Sex: Male
  Weight: 113.4 kg

DRUGS (14)
  1. TOPROL-XL [Concomitant]
     Indication: BLOOD PRESSURE
     Route: 048
  2. PREDNISONE TAB [Concomitant]
     Dosage: INITIALLY ONE TABLET DAILY, FOLLOWED BY HALF A TABLET DAILY FOR 3 DAYS.
     Route: 065
     Dates: end: 20111201
  3. REMICADE [Suspect]
     Route: 042
     Dates: start: 20080101
  4. METHOTREXATE [Suspect]
     Indication: PSORIASIS
     Route: 048
     Dates: start: 20110301
  5. CALCIUM CITRATE WITH VITAMIN D [Concomitant]
     Dosage: 5 TABLETS DAILY
     Route: 065
  6. REMICADE [Suspect]
     Indication: PSORIATIC ARTHROPATHY
     Route: 042
     Dates: start: 20090201, end: 20110101
  7. REMICADE [Suspect]
     Route: 042
     Dates: start: 20080101
  8. FOLIC ACID [Concomitant]
     Dosage: 5 TABLETS DAILY
     Route: 065
  9. CEFDINIR [Concomitant]
     Dosage: FOR 10 DAYS
     Route: 065
  10. VALSARTAN/HYDROCHLOROTHIAZIDE [Concomitant]
     Dosage: 320-25 MG
     Route: 048
  11. LOVAZA [Concomitant]
     Route: 065
  12. ASPIRIN [Concomitant]
     Dosage: 2 TABLETS ONCE A DAY
     Route: 065
  13. PROTONIX [Concomitant]
     Route: 065
  14. REMICADE [Suspect]
     Indication: PSORIASIS
     Route: 042
     Dates: start: 20090201, end: 20110101

REACTIONS (7)
  - NASOPHARYNGITIS [None]
  - ASTHMA [None]
  - BRONCHITIS BACTERIAL [None]
  - ACUTE SINUSITIS [None]
  - AGEUSIA [None]
  - RHINITIS ALLERGIC [None]
  - OBSTRUCTIVE AIRWAYS DISORDER [None]
